APPROVED DRUG PRODUCT: LORAZEPAM
Active Ingredient: LORAZEPAM
Strength: 0.5MG
Dosage Form/Route: TABLET;ORAL
Application: A077754 | Product #001 | TE Code: AB
Applicant: OXFORD PHARMACEUTICALS LLC
Approved: May 10, 2006 | RLD: No | RS: No | Type: RX